FAERS Safety Report 10034523 (Version 1)
Quarter: 2014Q1

REPORT INFORMATION
  Report Type: Spontaneous
  Country: US (occurrence: ES)
  Receive Date: 20140325
  Receipt Date: 20140325
  Transmission Date: 20141002
  Serious: Yes (Hospitalization)
  Sender: FDA-Public Use
  Company Number: ES-FRI-1000065705

PATIENT
  Age: 68 Year
  Sex: Male
  Weight: 85 kg

DRUGS (6)
  1. ROFLUMILAST [Suspect]
     Indication: CHRONIC OBSTRUCTIVE PULMONARY DISEASE
     Dosage: 1 DF
     Route: 048
     Dates: start: 20130715
  2. SYMBICORT [Concomitant]
  3. VENTOLIN [Concomitant]
  4. SEEBRI [Concomitant]
     Dates: start: 20130715
  5. NOVOMIX [Concomitant]
  6. MICARDIS [Concomitant]
     Dates: start: 20130715

REACTIONS (2)
  - Pneumonia [Recovered/Resolved]
  - Chronic obstructive pulmonary disease [Recovered/Resolved]
